FAERS Safety Report 8935551 (Version 1)
Quarter: 2012Q4

REPORT INFORMATION
  Report Type: 
  Country: GB (occurrence: GB)
  Receive Date: 20121130
  Receipt Date: 20121130
  Transmission Date: 20130627
  Serious: Yes (Hospitalization)
  Sender: FDA-Public Use
  Company Number: PHHY2012GB107425

PATIENT
  Age: 61 Year
  Sex: Male

DRUGS (36)
  1. RAMIPRIL [Suspect]
     Dosage: 2.5 mg, daily
     Route: 048
     Dates: start: 20101103, end: 20111025
  2. RAMIPRIL [Suspect]
     Dosage: 5 mg, daily and 3.75 mg daily
     Route: 048
     Dates: start: 20111026, end: 20120705
  3. RAMIPRIL [Suspect]
     Dosage: 2.5 mg, BID
     Route: 048
     Dates: start: 20120706, end: 20120727
  4. RAMIPRIL [Suspect]
     Dosage: 1.25 mg, UNK
     Route: 048
     Dates: start: 20120801
  5. BURINEX [Suspect]
     Indication: PRODUCT USED FOR UNKNOWN INDICATION
     Dosage: 2 mg, daily
     Route: 048
     Dates: start: 20101102, end: 20110309
  6. BURINEX [Suspect]
     Dosage: 2 mg, daily
     Route: 048
     Dates: start: 20120604, end: 20120616
  7. BURINEX [Suspect]
     Dosage: 2 mg, daily
     Route: 048
     Dates: start: 20120616, end: 20120727
  8. BURINEX [Suspect]
     Dosage: 2 mg, daily
     Route: 048
     Dates: start: 20120730
  9. ALEGLITAZAR [Suspect]
     Indication: CARDIOVASCULAR EVENT PROPHYLAXIS
     Route: 048
     Dates: start: 20101122
  10. LEVEMIR [Concomitant]
     Indication: PRODUCT USED FOR UNKNOWN INDICATION
     Dosage: 30 IU/l, UNK
     Route: 058
     Dates: start: 20020408, end: 20111212
  11. LEVEMIR [Concomitant]
     Dosage: 31 U, UNK
     Route: 058
     Dates: start: 20111212, end: 20120602
  12. LEVEMIR [Concomitant]
     Dosage: 10 U, UNK
     Route: 058
     Dates: start: 20120815
  13. DIAZEPAM [Concomitant]
     Indication: PRODUCT USED FOR UNKNOWN INDICATION
     Dosage: 3 mg, UNK
     Route: 048
     Dates: start: 20120628
  14. FRUSEMIDE [Concomitant]
     Indication: PRODUCT USED FOR UNKNOWN INDICATION
     Dosage: 80 mg, UNK
     Route: 048
     Dates: start: 20101217, end: 20110309
  15. FRUSEMIDE [Concomitant]
     Dosage: 80 mg, UNK
     Route: 048
     Dates: start: 20110309, end: 20120604
  16. FRUSEMIDE [Concomitant]
     Dosage: 120 mg, UNK
     Route: 048
     Dates: start: 20110309, end: 20110705
  17. FRUSEMIDE [Concomitant]
     Dosage: 100 mg, UNK
     Route: 048
     Dates: start: 20110705, end: 20120604
  18. BENDROFLUMETHIAZIDE [Concomitant]
     Indication: PRODUCT USED FOR UNKNOWN INDICATION
     Dosage: 2.5 mg, UNK
     Route: 048
     Dates: start: 20101104, end: 20110516
  19. BENDROFLUMETHIAZIDE [Concomitant]
     Dosage: 2.5 mg, UNK
     Route: 048
     Dates: start: 20111206, end: 20111212
  20. BENDROFLUMETHIAZIDE [Concomitant]
     Dosage: 2.5 mg, UNK
     Route: 048
     Dates: start: 20111212, end: 20120604
  21. AMILORIDE [Concomitant]
     Indication: PRODUCT USED FOR UNKNOWN INDICATION
     Dosage: 5 mg, UNK
     Route: 048
     Dates: start: 20110208, end: 20110222
  22. NORTRIPTYLINE HYDROCHLORIDE [Concomitant]
     Indication: PRODUCT USED FOR UNKNOWN INDICATION
     Dosage: 10 mg, UNK
     Route: 048
     Dates: start: 20110117
  23. PARACETAMOL [Concomitant]
     Indication: PRODUCT USED FOR UNKNOWN INDICATION
     Dosage: 1 g, UNK
     Route: 048
     Dates: start: 20110324
  24. EPLERENONE [Concomitant]
     Indication: PRODUCT USED FOR UNKNOWN INDICATION
     Dosage: 2 mg, UNK
     Route: 048
     Dates: start: 20120801
  25. PREGABALIN [Concomitant]
     Indication: PRODUCT USED FOR UNKNOWN INDICATION
     Dosage: 100 mg
     Route: 048
     Dates: start: 20120727
  26. FERROUS SULPHATE [Concomitant]
     Indication: PRODUCT USED FOR UNKNOWN INDICATION
     Dosage: 600 mg daily
     Route: 048
     Dates: start: 20120727
  27. FUSIDIC ACID [Concomitant]
     Indication: PRODUCT USED FOR UNKNOWN INDICATION
     Dosage: 1500 mg daily
     Route: 048
     Dates: start: 20120405, end: 20120501
  28. CYCLIZINE [Concomitant]
     Indication: PRODUCT USED FOR UNKNOWN INDICATION
     Dosage: 150 mg
     Route: 048
     Dates: start: 20120405, end: 20120501
  29. ASPIRIN [Concomitant]
     Indication: PRODUCT USED FOR UNKNOWN INDICATION
     Dosage: 75 mg
     Route: 048
     Dates: start: 20030814
  30. CLOPIDOGREL [Concomitant]
     Indication: PRODUCT USED FOR UNKNOWN INDICATION
     Dosage: 75 mg, UNK
     Route: 048
     Dates: start: 20101101
  31. INSPRA [Concomitant]
     Indication: PRODUCT USED FOR UNKNOWN INDICATION
     Route: 048
     Dates: start: 20101115
  32. ROSUVASTATIN [Concomitant]
     Indication: PRODUCT USED FOR UNKNOWN INDICATION
     Dosage: 40 mg, UNK
     Route: 048
     Dates: start: 20101102
  33. NOVORAPID [Concomitant]
     Indication: PRODUCT USED FOR UNKNOWN INDICATION
     Dates: start: 20020418, end: 20111212
  34. NOVORAPID [Concomitant]
     Route: 058
     Dates: start: 20111212, end: 20120602
  35. LANSOPRAZOLE [Concomitant]
     Indication: PRODUCT USED FOR UNKNOWN INDICATION
     Dosage: 30 mg, UNK
     Route: 048
     Dates: start: 20101101
  36. BECLOMETHASONE DIPROPIONATE [Concomitant]
     Indication: PRODUCT USED FOR UNKNOWN INDICATION
     Dosage: 500 ug, UNK
     Route: 055

REACTIONS (1)
  - Fall [Recovered/Resolved]
